FAERS Safety Report 6141073-8 (Version None)
Quarter: 2009Q2

REPORT INFORMATION
  Report Type: 
  Country: None (occurrence: None)
  Receive Date: 20090402
  Receipt Date: 20090327
  Transmission Date: 20091009
  Serious: Yes (Hospitalization)
  Sender: FDA-Public Use
  Company Number: BE-BRISTOL-MYERS SQUIBB COMPANY-14570345

PATIENT
  Age: 67 Year
  Sex: Female

DRUGS (2)
  1. CETUXIMAB [Suspect]
     Indication: BREAST CANCER METASTATIC
     Dosage: RECENT INF ON 12JAN09.
     Route: 042
     Dates: start: 20080916
  2. CISPLATIN [Suspect]
     Indication: BREAST CANCER METASTATIC
     Dosage: RECENT INF ON 29DEC08.
     Route: 042
     Dates: start: 20080916

REACTIONS (1)
  - ANAEMIA [None]
